FAERS Safety Report 7864323-6 (Version None)
Quarter: 2011Q4

REPORT INFORMATION
  Report Type: 
  Country: None (occurrence: None)
  Receive Date: 20111028
  Receipt Date: 20111025
  Transmission Date: 20120403
  Serious: Yes (Other)
  Sender: FDA-Public Use
  Company Number: GR-PFIZER INC-2011260141

PATIENT
  Age: 67 Year
  Sex: Female

DRUGS (1)
  1. QUINAPRIL [Suspect]
     Dosage: 5 MG, UNK

REACTIONS (1)
  - CONVULSION [None]
